FAERS Safety Report 6823928-1 (Version None)
Quarter: 2010Q3

REPORT INFORMATION
  Report Type: 
  Country: None (occurrence: None)
  Receive Date: 20100708
  Receipt Date: 20060922
  Transmission Date: 20110219
  Serious: No
  Sender: FDA-Public Use
  Company Number: US-PFIZER INC-2006116102

PATIENT
  Sex: Female
  Weight: 63.5 kg

DRUGS (7)
  1. CHANTIX [Suspect]
     Indication: EX-TOBACCO USER
     Route: 048
     Dates: start: 20060921
  2. LORAZEPAM [Concomitant]
  3. LORTAB [Concomitant]
  4. MAXAIR [Concomitant]
  5. FLOVENT [Concomitant]
  6. FLONASE [Concomitant]
  7. DICLOFENAC SODIUM [Concomitant]

REACTIONS (1)
  - NAUSEA [None]
